FAERS Safety Report 4736927-0 (Version None)
Quarter: 2005Q3

REPORT INFORMATION
  Report Type: 
  Country: None (occurrence: None)
  Receive Date: 20050808
  Receipt Date: 20050728
  Transmission Date: 20060218
  Serious: Yes (Hospitalization)
  Sender: FDA-Public Use
  Company Number: 200516888GDDC

PATIENT
  Age: 35 Year
  Sex: Male

DRUGS (2)
  1. AMARYL [Suspect]
     Route: 048
     Dates: end: 20050607
  2. GLUCOPHAGE [Suspect]
     Route: 048
     Dates: end: 20050607

REACTIONS (6)
  - CONVULSION [None]
  - HYPOGLYCAEMIA [None]
  - LOSS OF CONSCIOUSNESS [None]
  - MEMORY IMPAIRMENT [None]
  - SYNCOPE [None]
  - TACHYCARDIA [None]
